FAERS Safety Report 9068447 (Version 1)
Quarter: 2013Q1

REPORT INFORMATION
  Report Type: Spontaneous
  Country: GB (occurrence: GB)
  Receive Date: 20130128
  Receipt Date: 20130128
  Transmission Date: 20140127
  Serious: Yes (Other)
  Sender: FDA-Public Use
  Company Number: PHHY2013GB006250

PATIENT
  Age: 24 Year
  Sex: Female
  Weight: 59.1 kg

DRUGS (2)
  1. AMOXICILLIN\CLAVULANATE POTASSIUM [Suspect]
     Indication: ACUTE SINUSITIS
     Dosage: 10 ML, TID (250/62 10ML - THREE TIMES DAILY (BUT ONLY TOOK IT ONCE)
     Route: 048
     Dates: start: 20130108
  2. DEPO-PROVERA [Concomitant]

REACTIONS (4)
  - Loss of consciousness [Recovered/Resolved]
  - Chills [Recovered/Resolved]
  - Malaise [Recovered/Resolved]
  - Dizziness [Recovered/Resolved]
